FAERS Safety Report 6061949-X (Version None)
Quarter: 2009Q1

REPORT INFORMATION
  Report Type: 
  Country: None (occurrence: None)
  Receive Date: 20090202
  Receipt Date: 20090122
  Transmission Date: 20090719
  Serious: Yes (Hospitalization, Other)
  Sender: FDA-Public Use
  Company Number: US-BAXTER-2008BH011880

PATIENT
  Age: 39 Year
  Sex: Male
  Weight: 95 kg

DRUGS (6)
  1. HEPARIN SODIUM INJECTION [Suspect]
     Indication: SURGERY
     Dosage: DOSE UNIT:UNKNOWN
     Route: 065
     Dates: start: 20061201
  2. HEPARIN SODIUM INJECTION [Suspect]
     Indication: PROPHYLAXIS
     Dosage: DOSE UNIT:UNKNOWN
     Route: 065
     Dates: start: 20061201
  3. HEPARIN SODIUM INJECTION [Suspect]
     Route: 042
     Dates: start: 20040909
  4. HEPARIN SODIUM INJECTION [Suspect]
     Route: 042
     Dates: start: 20040909
  5. TRAZODONE HCL [Concomitant]
     Indication: DRUG USE FOR UNKNOWN INDICATION
     Route: 065
  6. IV STEROIDS [Concomitant]
     Indication: MULTIPLE SCLEROSIS
     Route: 065

REACTIONS (7)
  - CARDIAC DISORDER [None]
  - HYPERSENSITIVITY [None]
  - HYPERTENSION [None]
  - LOCALISED INFECTION [None]
  - RESPIRATORY DISTRESS [None]
  - SEPSIS [None]
  - TACHYCARDIA [None]
